FAERS Safety Report 9646386 (Version 2)
Quarter: 2014Q3

REPORT INFORMATION
  Report Type: Spontaneous
  Country: US (occurrence: US)
  Receive Date: 20131025
  Receipt Date: 20140730
  Transmission Date: 20150326
  Serious: No
  Sender: FDA-Public Use
  Company Number: US-009507513-1310USA011806

PATIENT
  Sex: Female

DRUGS (1)
  1. NUVARING [Suspect]
     Active Substance: ETHINYL ESTRADIOL\ETONOGESTREL
     Indication: CONTRACEPTION
     Dosage: UNK
     Dates: start: 200711

REACTIONS (8)
  - Foot fracture [Unknown]
  - Thrombophlebitis [Unknown]
  - Deep vein thrombosis [Unknown]
  - Ligament sprain [Unknown]
  - Nephrolithiasis [Unknown]
  - Gastric banding [Unknown]
  - Orthopaedic procedure [Unknown]
  - Nephropathy [Unknown]

NARRATIVE: CASE EVENT DATE: 201110
